FAERS Safety Report 11730075 (Version 4)
Quarter: 2015Q4

REPORT INFORMATION
  Report Type: Spontaneous
  Country: JP (occurrence: JP)
  Receive Date: 20151112
  Receipt Date: 20151124
  Transmission Date: 20160304
  Serious: Yes (Other)
  Sender: FDA-Public Use
  Company Number: JP-BAXTER-2015BAX060442

PATIENT
  Age: 55 Year
  Sex: Male

DRUGS (2)
  1. DOPAMINE HYDROCHLORIDE. [Suspect]
     Active Substance: DOPAMINE HYDROCHLORIDE
     Indication: PRODUCT USED FOR UNKNOWN INDICATION
     Route: 065
     Dates: start: 20150629
  2. SUPRANE [Suspect]
     Active Substance: DESFLURANE
     Indication: MAINTENANCE OF ANAESTHESIA
     Route: 055
     Dates: start: 20150629, end: 20150629

REACTIONS (1)
  - Agitation postoperative [Recovered/Resolved]

NARRATIVE: CASE EVENT DATE: 20150629
